FAERS Safety Report 11327067 (Version 1)
Quarter: 2015Q3

REPORT INFORMATION
  Report Type: Spontaneous
  Country: ES (occurrence: ES)
  Receive Date: 20150731
  Receipt Date: 20150731
  Transmission Date: 20151125
  Serious: Yes (Other)
  Sender: FDA-Public Use
  Company Number: PHHY2015ES090392

PATIENT
  Sex: Female
  Weight: 2.75 kg

DRUGS (5)
  1. OXYTOCIN. [Suspect]
     Active Substance: OXYTOCIN
     Indication: FOETAL EXPOSURE DURING PREGNANCY
     Route: 064
  2. VINBLASTINE SULFATE. [Suspect]
     Active Substance: VINBLASTINE SULFATE
     Indication: FOETAL EXPOSURE DURING PREGNANCY
     Route: 064
  3. DOXORUBICIN [Suspect]
     Active Substance: DOXORUBICIN
     Indication: FOETAL EXPOSURE DURING PREGNANCY
     Route: 064
  4. DACARBAZINE. [Suspect]
     Active Substance: DACARBAZINE
     Indication: FOETAL EXPOSURE DURING PREGNANCY
     Route: 064
  5. BLEOMYCIN [Suspect]
     Active Substance: BLEOMYCIN SULFATE
     Indication: FOETAL EXPOSURE DURING PREGNANCY
     Route: 064

REACTIONS (3)
  - Atrial septal defect [Recovered/Resolved]
  - Foetal exposure during pregnancy [Unknown]
  - Vascular shunt [Recovered/Resolved]
